FAERS Safety Report 6155380-6 (Version None)
Quarter: 2009Q2

REPORT INFORMATION
  Report Type: 
  Country: None (occurrence: None)
  Receive Date: 20090415
  Receipt Date: 20090409
  Transmission Date: 20091009
  Serious: Yes (Hospitalization)
  Sender: FDA-Public Use
  Company Number: US-JNJFOC-20090402877

PATIENT
  Age: 51 Year
  Sex: Male
  Weight: 83.01 kg

DRUGS (6)
  1. IBUPROFEN [Suspect]
     Indication: HEADACHE
     Route: 048
  2. IBUPROFEN [Suspect]
     Indication: INFLUENZA LIKE ILLNESS
     Route: 048
  3. BOCEPREVIR [Suspect]
     Indication: HEPATITIS C
     Route: 048
  4. RIBARVIRIN [Suspect]
     Indication: HEPATITIS C
     Route: 048
  5. PEG-INTRON [Concomitant]
     Indication: HEPATITIS C
     Route: 058
  6. NEXIUM [Concomitant]
     Indication: DYSPEPSIA

REACTIONS (3)
  - EROSIVE OESOPHAGITIS [None]
  - GASTRITIS EROSIVE [None]
  - HAEMATEMESIS [None]
